FAERS Safety Report 7867646-X (Version None)
Quarter: 2011Q4

REPORT INFORMATION
  Report Type: 
  Country: None (occurrence: None)
  Receive Date: 20111028
  Receipt Date: 20111024
  Transmission Date: 20120403
  Serious: Yes (Life-Threatening, Hospitalization, Other)
  Sender: FDA-Public Use
  Company Number: PHHY2011PL76439

PATIENT
  Sex: Female
  Weight: 50 kg

DRUGS (3)
  1. GILENYA [Suspect]
     Indication: MULTIPLE SCLEROSIS
     Dosage: 0.5 MG, PER DAY
     Route: 048
  2. BACLOFEN [Concomitant]
     Indication: PARESIS
     Dosage: 25 MG, TID
     Route: 048
  3. CONVULEX [Concomitant]
     Indication: PARESIS
     Dosage: 300 MG, BID
     Route: 048
     Dates: end: 20100825

REACTIONS (34)
  - HEMIPARESIS [None]
  - GENERAL PHYSICAL HEALTH DETERIORATION [None]
  - HYPERNATRAEMIA [None]
  - WRONG TECHNIQUE IN DRUG USAGE PROCESS [None]
  - ENCEPHALITIS [None]
  - CSF WHITE BLOOD CELL COUNT DECREASED [None]
  - BRAIN OEDEMA [None]
  - C-REACTIVE PROTEIN INCREASED [None]
  - RESPIRATORY DISORDER [None]
  - EXTENSOR PLANTAR RESPONSE [None]
  - CSF PROTEIN ABNORMAL [None]
  - CSF WHITE BLOOD CELL COUNT INCREASED [None]
  - LOSS OF CONSCIOUSNESS [None]
  - MULTIPLE SCLEROSIS RELAPSE [None]
  - MONOPLEGIA [None]
  - DIABETES INSIPIDUS [None]
  - ATELECTASIS [None]
  - HEMIPLEGIA [None]
  - SENSORY DISTURBANCE [None]
  - MUSCULAR WEAKNESS [None]
  - GAIT DISTURBANCE [None]
  - URINARY TRACT INFECTION [None]
  - PLEURAL EFFUSION [None]
  - PARESIS [None]
  - RESPIRATORY FAILURE [None]
  - NUCLEAR MAGNETIC RESONANCE IMAGING BRAIN ABNORMAL [None]
  - LYMPHOCYTE COUNT DECREASED [None]
  - BALANCE DISORDER [None]
  - CENTRAL NERVOUS SYSTEM LESION [None]
  - OPTIC DISC DISORDER [None]
  - CSF PROTEIN INCREASED [None]
  - ASPERGILLOSIS [None]
  - ASPERGILLUS TEST POSITIVE [None]
  - DEMYELINATION [None]
